FAERS Safety Report 15916094 (Version 1)
Quarter: 2019Q1

REPORT INFORMATION
  Report Type: Spontaneous
  Country: IT (occurrence: IT)
  Receive Date: 20190204
  Receipt Date: 20190204
  Transmission Date: 20190417
  Serious: Yes (Other)
  Sender: FDA-Public Use
  Company Number: PHHY2019IT024840

PATIENT
  Age: 40 Year
  Sex: Male

DRUGS (1)
  1. BETAMETHASONE+GENTAMICIN SULPHATE [Suspect]
     Active Substance: BETAMETHASONE\GENTAMICIN SULFATE
     Indication: DERMATOSIS
     Dosage: 1 DF, UNK
     Route: 061
     Dates: start: 20181219

REACTIONS (2)
  - Urticaria [Recovering/Resolving]
  - Pruritus generalised [Recovering/Resolving]

NARRATIVE: CASE EVENT DATE: 20181220
